FAERS Safety Report 10189025 (Version 3)
Quarter: 2014Q2

REPORT INFORMATION
  Report Type: Spontaneous
  Country: US (occurrence: US)
  Receive Date: 20140522
  Receipt Date: 20140617
  Transmission Date: 20141212
  Serious: Yes (Other)
  Sender: FDA-Public Use
  Company Number: US-PFIZER INC-2014138207

PATIENT
  Sex: Female

DRUGS (2)
  1. VENLAFAXINE HCL [Suspect]
     Indication: DEPRESSION
     Dosage: UNK, 2X/DAY
     Route: 048
     Dates: start: 201401, end: 2014
  2. VENLAFAXINE HCL [Suspect]
     Dosage: 150 MG, DAILY
     Route: 048
     Dates: start: 2014

REACTIONS (2)
  - Depression [Recovering/Resolving]
  - Drug ineffective [Recovering/Resolving]
